FAERS Safety Report 5826626-6 (Version None)
Quarter: 2008Q3

REPORT INFORMATION
  Report Type: 
  Country: None (occurrence: None)
  Receive Date: 20080728
  Receipt Date: 20080728
  Transmission Date: 20090109
  Serious: Yes (Hospitalization)
  Sender: FDA-Public Use
  Company Number: None

PATIENT
  Age: 35 Year
  Sex: Female
  Weight: 74.8435 kg

DRUGS (1)
  1. NUVA RING BIRTH CONTROL [Suspect]
     Dates: start: 20070801, end: 20080101

REACTIONS (1)
  - PULMONARY EMBOLISM [None]
